FAERS Safety Report 17780439 (Version 1)
Quarter: 2020Q2

REPORT INFORMATION
  Report Type: Other
  Country: GR (occurrence: GR)
  Receive Date: 20200514
  Receipt Date: 20200514
  Transmission Date: 20200714
  Serious: Yes (Other)
  Sender: FDA-Public Use
  Company Number: GR-VISTA PHARMACEUTICALS INC.-2083768

PATIENT
  Age: 5 Year
  Sex: Male

DRUGS (3)
  1. CLINDAMYCIN. [Suspect]
     Active Substance: CLINDAMYCIN
     Route: 065
  2. PYRIMETHAMINE LEUCOVORIN [Suspect]
     Active Substance: LEUCOVORIN CALCIUM\PYRIMETHAMINE
     Route: 065
  3. SULFAMETHOXAZOLE AND TRIMETHOPRIM [Suspect]
     Active Substance: SULFAMETHOXAZOLE\TRIMETHOPRIM
     Indication: ACUTE RESPIRATORY DISTRESS SYNDROME
     Route: 065

REACTIONS (1)
  - Drug ineffective [Unknown]
